FAERS Safety Report 8502425-1 (Version None)
Quarter: 2012Q3

REPORT INFORMATION
  Report Type: 
  Country: None (occurrence: None)
  Receive Date: 20120711
  Receipt Date: 20120706
  Transmission Date: 20120928
  Serious: Yes (Other)
  Sender: FDA-Public Use
  Company Number: PHHY2012CN050513

PATIENT
  Age: 74 Year
  Sex: Female

DRUGS (5)
  1. DIOVAN [Suspect]
     Dosage: 160 MG, DAILY
     Route: 048
     Dates: end: 20120616
  2. DIOVAN [Suspect]
     Indication: HYPERTENSION
     Dosage: 80 MG, DAILY
     Route: 048
     Dates: start: 20080101
  3. NIFEDIPINE [Concomitant]
     Dosage: 10 MG, UNK
     Dates: start: 20120101, end: 20120610
  4. TRIAMTERENE AND HYDROCHLOROTHIAZID [Concomitant]
     Dosage: 0.5 DF, UNK
     Dates: start: 20080101, end: 20110101
  5. NIFEDIPINE [Concomitant]
     Dosage: 20 MG, UNK
     Dates: start: 20120610

REACTIONS (3)
  - DRUG INEFFECTIVE [None]
  - BLOOD URIC ACID INCREASED [None]
  - BLOOD PRESSURE INADEQUATELY CONTROLLED [None]
